FAERS Safety Report 9835164 (Version 1)
Quarter: 2014Q1

REPORT INFORMATION
  Report Type: Spontaneous
  Country: US (occurrence: US)
  Receive Date: 20140122
  Receipt Date: 20140122
  Transmission Date: 20141002
  Serious: No
  Sender: FDA-Public Use
  Company Number: US-BRISTOL-MYERS SQUIBB COMPANY-19836865

PATIENT
  Age: 6 Decade
  Sex: Male

DRUGS (3)
  1. ELIQUIS [Suspect]
  2. LISINOPRIL [Suspect]
  3. AMIODARONE [Suspect]

REACTIONS (1)
  - Rash [Recovering/Resolving]
